FAERS Safety Report 5598722-2 (Version None)
Quarter: 2008Q1

REPORT INFORMATION
  Report Type: 
  Country: None (occurrence: None)
  Receive Date: 20080122
  Receipt Date: 20080110
  Transmission Date: 20080703
  Serious: Yes (Hospitalization, Other)
  Sender: FDA-Public Use
  Company Number: ES-BRISTOL-MYERS SQUIBB COMPANY-14031496

PATIENT
  Age: 61 Year
  Sex: Female

DRUGS (3)
  1. METFORMIN HCL [Suspect]
     Indication: DIABETES MELLITUS
     Dosage: CUMULATIVE DOSE OF 1700 MG.
     Route: 048
  2. IRBESARTAN [Suspect]
  3. AMLODIPINE [Suspect]

REACTIONS (2)
  - LACTIC ACIDOSIS [None]
  - PANCREATITIS ACUTE [None]
